FAERS Safety Report 8809421 (Version 1)
Quarter: 2012Q4

REPORT INFORMATION
  Report Type: Report from Study
  Country: CZ (occurrence: CZ)
  Receive Date: 20120926
  Receipt Date: 20120926
  Transmission Date: 20130627
  Serious: Yes (Death, Life-Threatening, Hospitalization, Disabling, Other)
  Sender: FDA-Public Use
  Company Number: CZ-ROCHE-1130014

PATIENT
  Age: 81 Year
  Sex: Male
  Weight: 96 kg

DRUGS (3)
  1. ALTEPLASE [Suspect]
     Indication: PULMONARY EMBOLISM
     Dosage: 10 mg IV as bolus (1-2 minutes) and 90 mg IV as infusion (within 120 minutes)
     Route: 042
     Dates: start: 20120910, end: 20120910
  2. CLEXANE [Concomitant]
     Indication: PULMONARY EMBOLISM
     Route: 065
  3. HEPARIN [Concomitant]
     Route: 065

REACTIONS (3)
  - Coma [Fatal]
  - Central nervous system haemorrhage [Fatal]
  - Hyperpyrexia [Fatal]
